FAERS Safety Report 5723899-5 (Version None)
Quarter: 2008Q2

REPORT INFORMATION
  Report Type: 
  Country: None (occurrence: None)
  Receive Date: 20080430
  Receipt Date: 20080423
  Transmission Date: 20081010
  Serious: Yes (Hospitalization)
  Sender: FDA-Public Use
  Company Number: FI-ASTRAZENECA-2008SE01997

PATIENT
  Age: 19 Year
  Sex: Female

DRUGS (3)
  1. SEROQUEL [Suspect]
     Indication: MANIA
     Dosage: FIRST DAY
     Route: 048
  2. SEROQUEL [Suspect]
     Dosage: SECOND DAY
     Route: 048
  3. SEROQUEL [Suspect]
     Dosage: FROM THE 5TH DAY COUNTING FROM THE START OF THE TREATMENT
     Route: 048

REACTIONS (1)
  - MULTIPLE SCLEROSIS [None]
